FAERS Safety Report 18029261 (Version 2)
Quarter: 2020Q3

REPORT INFORMATION
  Report Type: Report from Study
  Country: GB (occurrence: GB)
  Receive Date: 20200715
  Receipt Date: 20200803
  Transmission Date: 20201103
  Serious: Yes (Other)
  Sender: FDA-Public Use
  Company Number: GB-JNJFOC-20200713934

PATIENT
  Age: 6 Decade
  Sex: Female

DRUGS (5)
  1. LEVOTHYROXINE                      /00068002/ [Concomitant]
     Active Substance: LEVOTHYROXINE
  2. ESTRADIOL. [Concomitant]
     Active Substance: ESTRADIOL
     Route: 065
  3. STELARA [Suspect]
     Active Substance: USTEKINUMAB
  4. VARENICLINE                        /05703002/ [Concomitant]
     Active Substance: VARENICLINE TARTRATE
     Route: 065
  5. STELARA [Suspect]
     Active Substance: USTEKINUMAB
     Indication: PSORIASIS
     Route: 058
     Dates: start: 20170608

REACTIONS (2)
  - Infection [Unknown]
  - Tooth extraction [Unknown]

NARRATIVE: CASE EVENT DATE: 2020
